FAERS Safety Report 6376353-4 (Version None)
Quarter: 2009Q3

REPORT INFORMATION
  Report Type: 
  Country: None (occurrence: None)
  Receive Date: 20090922
  Receipt Date: 20090922
  Transmission Date: 20100115
  Serious: Yes (Life-Threatening, Disabling, Other)
  Sender: FDA-Public Use
  Company Number: None

PATIENT
  Age: 9 Year
  Sex: Male
  Weight: 27.2158 kg

DRUGS (2)
  1. SINGULAIR [Suspect]
     Indication: ASTHMA
     Dosage: TAKE 1 TABLET DAILY STILL TAKING
  2. . [Concomitant]

REACTIONS (7)
  - AFFECTIVE DISORDER [None]
  - ENURESIS [None]
  - FEAR [None]
  - FRUSTRATION [None]
  - PSYCHOMOTOR HYPERACTIVITY [None]
  - TACHYPHRENIA [None]
  - THIRST [None]
